FAERS Safety Report 23202687 (Version 2)
Quarter: 2023Q4

REPORT INFORMATION
  Report Type: Spontaneous
  Country: JP (occurrence: JP)
  Receive Date: 20231120
  Receipt Date: 20231218
  Transmission Date: 20240110
  Serious: No
  Sender: FDA-Public Use
  Company Number: JP-ASTELLAS-2023JP012548

PATIENT
  Age: 66 Year
  Sex: Male

DRUGS (3)
  1. HARNAL [Suspect]
     Active Substance: TAMSULOSIN HYDROCHLORIDE
     Indication: Benign prostatic hyperplasia
     Dosage: UNK
     Route: 065
     Dates: end: 20231108
  2. MIRABEGRON [Suspect]
     Active Substance: MIRABEGRON
     Indication: Hypertonic bladder
     Dosage: UNK
     Route: 065
     Dates: start: 202310, end: 20231108
  3. DANTHRON\DOCUSATE SODIUM [Suspect]
     Active Substance: DANTHRON\DOCUSATE SODIUM
     Indication: Cough
     Dosage: UNK
     Route: 048

REACTIONS (1)
  - Urinary retention [Recovering/Resolving]

NARRATIVE: CASE EVENT DATE: 20231108
